FAERS Safety Report 8390644-7 (Version None)
Quarter: 2012Q1

REPORT INFORMATION
  Report Type: 
  Country: None (occurrence: None)
  Receive Date: 20120323
  Receipt Date: 20110308
  Transmission Date: 20120608
  Serious: Yes (Hospitalization)
  Sender: FDA-Public Use
  Company Number: 163-21880-11031129

PATIENT
  Age: 67 Year
  Sex: Male

DRUGS (16)
  1. SPIRIVA [Concomitant]
  2. ZYRTEC [Concomitant]
  3. ALBUTEROL [Concomitant]
  4. CALCIUM WITH VITAMIN D (CALCIUM WITH VITAMIN D) [Concomitant]
  5. ZOLPIDEM [Concomitant]
  6. ARANESP [Concomitant]
  7. ATENOLOL [Concomitant]
  8. CEFDINIR [Concomitant]
  9. FISH OIL (FISH OIL) (CAPSULES) [Concomitant]
  10. LASIX [Concomitant]
  11. REVLIMID [Suspect]
     Indication: MYELODYSPLASTIC SYNDROME
     Dosage: 10 MG, 1 IN 1 D, PO
     Route: 048
     Dates: start: 20110212, end: 20110221
  12. ADVAIR (SERETIDE MITE) (INHALANT) [Concomitant]
  13. OMEPRAZOLE [Concomitant]
  14. SINGULAIR [Concomitant]
  15. MULTIVITAMIN [Concomitant]
  16. VICODAN (VICODIN) [Concomitant]

REACTIONS (3)
  - NEUTROPENIA [None]
  - FUNGAL INFECTION [None]
  - ANAEMIA [None]
